FAERS Safety Report 6545086-3 (Version None)
Quarter: 2010Q1

REPORT INFORMATION
  Report Type: 
  Country: None (occurrence: None)
  Receive Date: 20100115
  Receipt Date: 20100111
  Transmission Date: 20100710
  Serious: Yes (Death, Hospitalization)
  Sender: FDA-Public Use
  Company Number: 2010000061

PATIENT
  Age: 37 Year
  Sex: Male
  Weight: 99.5 kg

DRUGS (1)
  1. TREANDA [Suspect]
     Indication: HODGKIN'S DISEASE
     Dosage: INTRAVENOUS
     Route: 042
     Dates: start: 20090818, end: 20091117

REACTIONS (3)
  - BACTERIAL SEPSIS [None]
  - CARDIO-RESPIRATORY ARREST [None]
  - PNEUMONIA [None]
